FAERS Safety Report 25748558 (Version 1)
Quarter: 2025Q3

REPORT INFORMATION
  Report Type: Spontaneous
  Country: US (occurrence: US)
  Receive Date: 20250902
  Receipt Date: 20250902
  Transmission Date: 20251021
  Serious: Yes (Hospitalization)
  Sender: SANOFI AVENTIS
  Company Number: US-SA-2025SA260121

PATIENT
  Age: 76 Year
  Sex: Female
  Weight: 59.55 kg

DRUGS (11)
  1. DUPIXENT [Suspect]
     Active Substance: DUPILUMAB
     Indication: Chronic obstructive pulmonary disease
     Dosage: 300 MG, QOW
     Route: 058
  2. OXYGEN [Concomitant]
     Active Substance: OXYGEN
  3. PREDNISONE [Concomitant]
     Active Substance: PREDNISONE
  4. ALBUTEROL SULFATE [Concomitant]
     Active Substance: ALBUTEROL SULFATE
  5. TRELEGY ELLIPTA [Concomitant]
     Active Substance: FLUTICASONE FUROATE\UMECLIDINIUM BROMIDE\VILANTEROL TRIFENATATE
  6. VENTOLIN HFA [Concomitant]
     Active Substance: ALBUTEROL SULFATE
  7. CLONAZEPAM [Concomitant]
     Active Substance: CLONAZEPAM
  8. TRAZODONE HCL [Concomitant]
     Active Substance: TRAZODONE HYDROCHLORIDE
  9. ESCITALOPRAM OXALATE [Concomitant]
     Active Substance: ESCITALOPRAM OXALATE
  10. LEVOTHYROXINE SODIUM [Concomitant]
     Active Substance: LEVOTHYROXINE SODIUM
  11. LISINOPRIL [Concomitant]
     Active Substance: LISINOPRIL

REACTIONS (2)
  - Hospitalisation [Unknown]
  - Inappropriate schedule of product administration [Unknown]

NARRATIVE: CASE EVENT DATE: 20250825
